FAERS Safety Report 5694357-1 (Version None)
Quarter: 2008Q2

REPORT INFORMATION
  Report Type: 
  Country: None (occurrence: None)
  Receive Date: 20080402
  Receipt Date: 20080318
  Transmission Date: 20081010
  Serious: Yes (Life-Threatening, Hospitalization, Other)
  Sender: FDA-Public Use
  Company Number: MEDI-0006614

PATIENT
  Age: 12 Month
  Sex: Male
  Weight: 10.2 kg

DRUGS (2)
  1. SYNAGIS [Suspect]
     Indication: ANTIVIRAL PROPHYLAXIS
     Dosage: 50 MG, SUBCUTANEOUS; 100 MG, INTRAMUSCULAR
     Dates: start: 20080104, end: 20080208
  2. SYNAGIS [Suspect]
     Indication: ANTIVIRAL PROPHYLAXIS
     Dosage: 50 MG, SUBCUTANEOUS; 100 MG, INTRAMUSCULAR
     Dates: start: 20080104

REACTIONS (2)
  - CEREBRAL ARTERY STENOSIS [None]
  - CEREBRAL INFARCTION [None]
